FAERS Safety Report 24328489 (Version 1)
Quarter: 2024Q3

REPORT INFORMATION
  Report Type: Spontaneous
  Country: ES (occurrence: ES)
  Receive Date: 20240917
  Receipt Date: 20240917
  Transmission Date: 20241016
  Serious: Yes (Hospitalization)
  Sender: TEVA
  Company Number: None

PATIENT
  Age: 68 Year
  Sex: Male

DRUGS (2)
  1. CIPROFLOXACIN [Interacting]
     Active Substance: CIPROFLOXACIN
     Indication: Urinary tract infection
     Dosage: CIPROFLOXACIN (2049A)
     Route: 048
     Dates: start: 20230806, end: 20230807
  2. DULOXETINE [Interacting]
     Active Substance: DULOXETINE
     Indication: Polyneuropathy
     Dosage: DULOXETINE (7421A)
     Route: 048
     Dates: start: 20200226, end: 20230807

REACTIONS (1)
  - Inappropriate antidiuretic hormone secretion [Recovered/Resolved]

NARRATIVE: CASE EVENT DATE: 20230807
